FAERS Safety Report 4973410-1 (Version None)
Quarter: 2006Q2

REPORT INFORMATION
  Report Type: 
  Country: None (occurrence: None)
  Receive Date: 20060413
  Receipt Date: 20060413
  Transmission Date: 20061013
  Serious: No
  Sender: FDA-Public Use
  Company Number: None

PATIENT
  Age: 35 Year
  Sex: Female
  Weight: 56.6996 kg

DRUGS (1)
  1. ISONIAZID [Suspect]
     Dosage: 300MG  DAILY  PO
     Route: 048
     Dates: start: 20030208, end: 20031108

REACTIONS (5)
  - DECREASED ACTIVITY [None]
  - DIABETES MELLITUS INSULIN-DEPENDENT [None]
  - DRUG TOXICITY [None]
  - NEUROPATHY PERIPHERAL [None]
  - UNEVALUABLE EVENT [None]
